FAERS Safety Report 5387421-8 (Version None)
Quarter: 2007Q3

REPORT INFORMATION
  Report Type: 
  Country: None (occurrence: None)
  Receive Date: 20070711
  Receipt Date: 20070711
  Transmission Date: 20080115
  Serious: Yes (Hospitalization)
  Sender: FDA-Public Use
  Company Number: None

PATIENT
  Age: 56 Year
  Sex: Female

DRUGS (2)
  1. PHOSPHOSODA FLAVOR NOT SPECIFIED [Suspect]
     Indication: HYSTERECTOMY
     Dosage: 90 ML; PO
     Route: 048
     Dates: start: 20050418, end: 20050418
  2. PHOSPHOSODA FLAVOR NOT SPECIFIED [Suspect]
     Indication: LAPAROTOMY
     Dosage: 90 ML; PO
     Route: 048
     Dates: start: 20050418, end: 20050418

REACTIONS (6)
  - ANAEMIA [None]
  - ANXIETY [None]
  - EYELID OEDEMA [None]
  - HEADACHE [None]
  - HYPERTENSION [None]
  - RENAL FAILURE ACUTE [None]
